FAERS Safety Report 4543908-9 (Version None)
Quarter: 2005Q1

REPORT INFORMATION
  Report Type: 
  Country: None (occurrence: None)
  Receive Date: 20050103
  Receipt Date: 20040220
  Transmission Date: 20050727
  Serious: Yes (Death, Hospitalization)
  Sender: FDA-Public Use
  Company Number: GXKR2004GB00578

PATIENT
  Sex: Male

DRUGS (3)
  1. WARFARIN (NGX) (WARFARIN) UNKNOWN [Suspect]
  2. PHENYTOIN [Concomitant]
  3. DIGOXIN [Concomitant]

REACTIONS (4)
  - FOOD INTERACTION [None]
  - GASTROINTESTINAL HAEMORRHAGE [None]
  - INTERNATIONAL NORMALISED RATIO INCREASED [None]
  - PERICARDIAL HAEMORRHAGE [None]
